FAERS Safety Report 23548472 (Version 1)
Quarter: 2024Q1

REPORT INFORMATION
  Report Type: Spontaneous
  Country: FR (occurrence: FR)
  Receive Date: 20240221
  Receipt Date: 20240221
  Transmission Date: 20240410
  Serious: Yes (Life-Threatening, Hospitalization)
  Sender: FDA-Public Use
  Company Number: None

PATIENT
  Age: 43 Year
  Sex: Male
  Weight: 68 kg

DRUGS (5)
  1. DIAZEPAM [Suspect]
     Active Substance: DIAZEPAM
     Indication: Psychiatric decompensation
     Route: 048
     Dates: start: 202311
  2. LOXAPINE [Suspect]
     Active Substance: LOXAPINE
     Indication: Psychiatric decompensation
     Dosage: LOXAPINE (SUCCINATE DE)
     Route: 048
     Dates: start: 202311
  3. RIVOTRIL [Suspect]
     Active Substance: CLONAZEPAM
     Indication: Psychiatric decompensation
     Dosage: 4*2MG/DAYX2/D
     Route: 048
     Dates: start: 20231121, end: 20231123
  4. RIVOTRIL [Suspect]
     Active Substance: CLONAZEPAM
     Indication: Psychiatric decompensation
     Dosage: 5*2MG/DAY
     Route: 048
     Dates: start: 20231120, end: 20231120
  5. CLOZAPINE [Suspect]
     Active Substance: CLOZAPINE
     Indication: Psychiatric decompensation
     Route: 048
     Dates: start: 20231113

REACTIONS (2)
  - Faecaloma [Recovered/Resolved]
  - Acute respiratory failure [Recovered/Resolved]

NARRATIVE: CASE EVENT DATE: 20231124
